FAERS Safety Report 6619277-7 (Version None)
Quarter: 2010Q1

REPORT INFORMATION
  Report Type: 
  Country: None (occurrence: None)
  Receive Date: 20100303
  Receipt Date: 20100217
  Transmission Date: 20100710
  Serious: Yes (Hospitalization)
  Sender: FDA-Public Use
  Company Number: 007551

PATIENT
  Sex: Female
  Weight: 51 kg

DRUGS (11)
  1. CERTOLIZUMAB PEGOL (CDP870) [Suspect]
     Indication: RHEUMATOID ARTHRITIS
     Dosage: (200 MG 1X/2 WEEKS SUBCUTANEOUS)
     Route: 058
     Dates: start: 20100111
  2. METHOTREXATE [Concomitant]
  3. PREDNISOLONE [Concomitant]
  4. NABUMETONE [Concomitant]
  5. TRIAMCINOLONE [Concomitant]
  6. ETIZOLAM [Concomitant]
  7. HYDROCHLOROTHIAZIDE [Concomitant]
  8. AMITRIPTYLINE HCL [Concomitant]
  9. AMLODIPINE BESYLATE [Concomitant]
  10. FOLIC ACID [Concomitant]
  11. ISONIAZID [Concomitant]

REACTIONS (2)
  - CHILLS [None]
  - PYREXIA [None]
